FAERS Safety Report 8548650 (Version 4)
Quarter: 2012Q4

REPORT INFORMATION
  Report Type: Spontaneous
  Country: CA (occurrence: None)
  Receive Date: 20120427
  Receipt Date: 20120814
  Transmission Date: 20130627
  Serious: Yes (Death, Life-Threatening, Hospitalization)
  Sender: FDA-Public Use
  Company Number: 2012SGN00157

PATIENT
  Age: 45 Year
  Sex: Female

DRUGS (7)
  1. ADCETRIS [Suspect]
     Indication: NON-HODGKIN^S LYMPHOMA REFRACTORY
     Dosage: 180 MG, UNK, INTRAVENOUS
     Route: 042
     Dates: start: 20120328, end: 20120328
  2. LORAZEPAM [Concomitant]
  3. ULONE (CLOFEDANOL HYDROCHLORIDE) [Concomitant]
  4. SENNOSIDE (SENNOSIDE A+B CALCIUM) [Concomitant]
  5. OXAZEPAM [Concomitant]
  6. ADVAIR HFA [Concomitant]
  7. VENTOLIN (BECLOMETASONE DIPROPIONATE, SALBUTAMOL) [Concomitant]

REACTIONS (10)
  - Lung disorder [None]
  - Neutropenic colitis [None]
  - Septic shock [None]
  - Lactic acidosis [None]
  - Candidiasis [None]
  - Hypomagnesaemia [None]
  - Hypocalcaemia [None]
  - Hypophosphataemia [None]
  - Hypokalaemia [None]
  - Lower respiratory tract infection fungal [None]
